FAERS Safety Report 4973816-0 (Version None)
Quarter: 2006Q2

REPORT INFORMATION
  Report Type: 
  Country: None (occurrence: None)
  Receive Date: 20060414
  Receipt Date: 20051026
  Transmission Date: 20061013
  Serious: Yes (Hospitalization, Disabling)
  Sender: FDA-Public Use
  Company Number: US-MERCK-0510USA09460

PATIENT
  Age: 63 Year
  Sex: Male
  Weight: 132 kg

DRUGS (16)
  1. VIOXX [Suspect]
     Indication: ARTHRITIS
     Route: 048
     Dates: start: 20010110, end: 20040923
  2. ALLOPURINOL MSD [Concomitant]
     Route: 065
  3. COLCHICINE [Concomitant]
     Route: 065
  4. INSULIN [Concomitant]
     Route: 065
  5. CELEBREX [Concomitant]
     Route: 065
  6. ZESTORETIC [Concomitant]
     Route: 065
  7. DITROPAN XL [Concomitant]
     Route: 065
  8. CARDURA [Concomitant]
     Route: 065
  9. ZOCOR [Concomitant]
     Route: 065
  10. NORVASC [Concomitant]
     Route: 065
  11. AMITRIPTYLINE PAMOATE [Concomitant]
     Route: 065
  12. TOPROL-XL [Concomitant]
     Route: 065
  13. LOPRESSOR [Concomitant]
     Route: 065
  14. INDOMETHACIN [Concomitant]
     Route: 065
  15. POTASSIUM (UNSPECIFIED) [Concomitant]
     Route: 065
  16. LASIX [Concomitant]
     Route: 065

REACTIONS (13)
  - ANGINA UNSTABLE [None]
  - ARTERIOSCLEROSIS CORONARY ARTERY [None]
  - ATRIAL FIBRILLATION [None]
  - BLOOD CHOLESTEROL INCREASED [None]
  - BUNDLE BRANCH BLOCK RIGHT [None]
  - CARDIOMEGALY [None]
  - DIABETES MELLITUS [None]
  - GASTRIC DISORDER [None]
  - GOUT [None]
  - HYPERTENSION [None]
  - MYOCARDIAL ISCHAEMIA [None]
  - OEDEMA PERIPHERAL [None]
  - RENAL FAILURE [None]
